FAERS Safety Report 11100358 (Version 1)
Quarter: 2015Q2

REPORT INFORMATION
  Report Type: Spontaneous
  Country: US (occurrence: None)
  Receive Date: 20150507
  Receipt Date: 20150507
  Transmission Date: 20150821
  Serious: Yes (Disabling)
  Sender: FDA-Public Use
  Company Number: None

PATIENT
  Age: 51 Year
  Sex: Female
  Weight: 63.5 kg

DRUGS (16)
  1. CYCLOBENZAPRINE [Concomitant]
     Active Substance: CYCLOBENZAPRINE
  2. BUSPIRONE [Concomitant]
     Active Substance: BUSPIRONE HYDROCHLORIDE
  3. STOOL SOFTENER [Concomitant]
     Active Substance: DOCUSATE CALCIUM
  4. BONIVA [Concomitant]
     Active Substance: IBANDRONATE SODIUM
  5. ZOFRAN [Concomitant]
     Active Substance: ONDANSETRON HYDROCHLORIDE
  6. BOOST SUPPLEMENT DRINK [Concomitant]
  7. MS CONTIN [Concomitant]
     Active Substance: MORPHINE SULFATE
  8. ZYRTEC [Concomitant]
     Active Substance: CETIRIZINE HYDROCHLORIDE
  9. LINZESS [Suspect]
     Active Substance: LINACLOTIDE
     Indication: GASTROINTESTINAL DISORDER
     Dosage: 30 MIN. PRIOR TO BF
     Route: 048
     Dates: start: 20131203, end: 20140605
  10. PROAIR HFA [Concomitant]
     Active Substance: ALBUTEROL SULFATE
  11. ZOMIG ODT [Concomitant]
  12. EXCEDRIN MIGRAINE [Concomitant]
     Active Substance: ACETAMINOPHEN\ASPIRIN\CAFFEINE
  13. DEXILANT [Concomitant]
     Active Substance: DEXLANSOPRAZOLE
  14. LEVOTHYROXINE [Concomitant]
     Active Substance: LEVOTHYROXINE
  15. PLAQUENL [Concomitant]
  16. ELDER TONIC [Concomitant]

REACTIONS (6)
  - Weight decreased [None]
  - Abdominal distension [None]
  - Dysgeusia [None]
  - Diarrhoea [None]
  - Decreased appetite [None]
  - Depression [None]

NARRATIVE: CASE EVENT DATE: 20131203
